FAERS Safety Report 6259212-7 (Version None)
Quarter: 2009Q3

REPORT INFORMATION
  Report Type: 
  Country: None (occurrence: None)
  Receive Date: 20090702
  Receipt Date: 20090619
  Transmission Date: 20100115
  Serious: Yes (Hospitalization)
  Sender: FDA-Public Use
  Company Number: 8040427

PATIENT
  Age: 30 Year
  Sex: Female
  Weight: 77.3 kg

DRUGS (3)
  1. CIMZIA [Suspect]
     Indication: CROHN'S DISEASE
     Dosage: 400 MG /M SC
     Route: 058
     Dates: start: 20081021
  2. VITAMIN TAB [Concomitant]
  3. COUMADIN [Concomitant]

REACTIONS (4)
  - ARTERIAL THROMBOSIS [None]
  - DRUG EXPOSURE DURING PREGNANCY [None]
  - INTESTINAL ISCHAEMIA [None]
  - SPLENIC INFARCTION [None]
